FAERS Safety Report 10048531 (Version 3)
Quarter: 2014Q2

REPORT INFORMATION
  Report Type: Report from Study
  Country: AU (occurrence: AU)
  Receive Date: 20140331
  Receipt Date: 20140414
  Transmission Date: 20141212
  Serious: Yes (Other)
  Sender: FDA-Public Use
  Company Number: PHHY2014AU037151

PATIENT
  Sex: Female

DRUGS (9)
  1. ACLASTA [Suspect]
     Indication: OSTEOPOROSIS
     Dosage: 5MG/100ML, UNK
     Route: 042
     Dates: start: 20090219
  2. ACLASTA [Suspect]
     Dosage: 5MG/100ML, UNK
     Route: 042
     Dates: start: 20100309
  3. ACLASTA [Suspect]
     Dosage: 5MG/100ML, UNK
     Route: 042
     Dates: start: 20110520
  4. ACLASTA [Suspect]
     Dosage: 5MG/100ML, UNK
     Route: 042
     Dates: start: 20140314
  5. CALTRATE + VITAMIN D [Concomitant]
     Indication: MALABSORPTION
     Dosage: 25 UG, QD
     Route: 048
     Dates: start: 20140224
  6. CREON [Concomitant]
     Indication: MALABSORPTION
     Dosage: 10000 U/8000 U/600 U (2 DF TID WITH MAIN MEAL AND 1 DF WITH SNACKS), ENTERIC COTED
     Route: 048
     Dates: start: 20121011
  7. CREON [Concomitant]
     Dosage: 10000 U/8000 U/600 U, 2 DF TID PRN
     Route: 048
     Dates: start: 20130621
  8. PANADOL OSTEO [Concomitant]
     Dosage: 2 DF, TID
     Route: 048
     Dates: start: 20140110
  9. ASTRIX [Concomitant]
     Dosage: 1 DF, QD
     Route: 048

REACTIONS (9)
  - Cataract [Not Recovered/Not Resolved]
  - Dementia Alzheimer^s type [Not Recovered/Not Resolved]
  - Depression [Not Recovered/Not Resolved]
  - Impaired fasting glucose [Not Recovered/Not Resolved]
  - Bronchitis [Not Recovered/Not Resolved]
  - Dupuytren^s contracture [Not Recovered/Not Resolved]
  - Lymphopenia [Not Recovered/Not Resolved]
  - Gastrooesophageal reflux disease [Not Recovered/Not Resolved]
  - Hypertension [Not Recovered/Not Resolved]
